FAERS Safety Report 22287812 (Version 1)
Quarter: 2023Q2

REPORT INFORMATION
  Report Type: Spontaneous
  Country: AU (occurrence: None)
  Receive Date: 20230505
  Receipt Date: 20230505
  Transmission Date: 20230722
  Serious: Yes (Other)
  Sender: FDA-Public Use
  Company Number: 2023A098557

PATIENT
  Age: 57 Year
  Sex: Male

DRUGS (10)
  1. TICAGRELOR [Suspect]
     Active Substance: TICAGRELOR
  2. ALDACTONE [Concomitant]
     Active Substance: SPIRONOLACTONE
  3. ATORVASTATIN [Concomitant]
     Active Substance: ATORVASTATIN
  4. BISOPROLOL [Concomitant]
     Active Substance: BISOPROLOL
  5. METFORMIN [Concomitant]
     Active Substance: METFORMIN HYDROCHLORIDE
  6. EMPAGLIFLOZIN [Concomitant]
     Active Substance: EMPAGLIFLOZIN
  7. FUROSEMIDE [Concomitant]
     Active Substance: FUROSEMIDE
  8. PERINDOPRIL [Concomitant]
     Active Substance: PERINDOPRIL
  9. SITAGLIPTIN [Concomitant]
     Active Substance: SITAGLIPTIN
  10. ASPIRIN [Concomitant]
     Active Substance: ASPIRIN

REACTIONS (7)
  - Sepsis [Unknown]
  - Angioedema [Unknown]
  - Cardiac failure [Unknown]
  - Dysphagia [Unknown]
  - Glossitis [Unknown]
  - Taste disorder [Unknown]
  - Swollen tongue [Unknown]
